FAERS Safety Report 8260962-1 (Version None)
Quarter: 2012Q2

REPORT INFORMATION
  Report Type: 
  Country: None (occurrence: None)
  Receive Date: 20120405
  Receipt Date: 20120402
  Transmission Date: 20120825
  Serious: No
  Sender: FDA-Public Use
  Company Number: US-PFIZER INC-2012083631

PATIENT
  Sex: Female
  Weight: 71.202 kg

DRUGS (6)
  1. LIPITOR [Suspect]
     Indication: BLOOD CHOLESTEROL INCREASED
     Dosage: 20 MG, 1X/DAY
     Route: 048
     Dates: start: 20111101, end: 20120323
  2. TOPIRAMATE [Concomitant]
     Indication: MIGRAINE
     Dosage: 25 MG, 1X/DAY AT NIGHT
  3. OMEPRAZOLE [Concomitant]
     Indication: HIATUS HERNIA
     Dosage: 40 MG, 1X/DAY
  4. ZOLOFT [Suspect]
     Indication: DEPRESSION
     Dosage: 100 MG, 1X/DAY
     Route: 048
     Dates: start: 20101201, end: 20111001
  5. FIORICET [Concomitant]
     Indication: MIGRAINE
     Dosage: 30 MG, AS NEEDED
  6. CLONAZEPAM [Concomitant]
     Indication: ANXIETY
     Dosage: 1 MG, 2X/DAY

REACTIONS (4)
  - ANXIETY [None]
  - DRUG INEFFECTIVE [None]
  - BLOOD CHOLESTEROL INCREASED [None]
  - BLOOD CHOLESTEROL ABNORMAL [None]
